FAERS Safety Report 5638277-7 (Version None)
Quarter: 2008Q1

REPORT INFORMATION
  Report Type: 
  Country: None (occurrence: None)
  Receive Date: 20080226
  Receipt Date: 20080218
  Transmission Date: 20080703
  Serious: Yes (Other)
  Sender: FDA-Public Use
  Company Number: JP-BAYER-200810283BYL

PATIENT
  Age: 39 Year
  Sex: Female

DRUGS (1)
  1. ASPIRIN [Suspect]
     Route: 048
     Dates: start: 20050601, end: 20050601

REACTIONS (1)
  - TOXIC EPIDERMAL NECROLYSIS [None]
